FAERS Safety Report 5636221-X (Version None)
Quarter: 2008Q1

REPORT INFORMATION
  Report Type: 
  Country: None (occurrence: None)
  Receive Date: 20080220
  Receipt Date: 20080220
  Transmission Date: 20080703
  Serious: No
  Sender: FDA-Public Use
  Company Number: None

PATIENT
  Age: 61 Year
  Sex: Female
  Weight: 61.6892 kg

DRUGS (2)
  1. FORTAZ [Suspect]
     Indication: EVIDENCE BASED TREATMENT
     Dosage: 1 GRAM Q8H IV
     Route: 042
     Dates: start: 20080124, end: 20080128
  2. FLAGYL [Suspect]
     Indication: DIARRHOEA
     Dosage: 500 MG TID PEG
     Dates: start: 20080124, end: 20080128

REACTIONS (3)
  - DRUG HYPERSENSITIVITY [None]
  - PRURITUS [None]
  - RASH [None]
